FAERS Safety Report 6759126-X (Version None)
Quarter: 2010Q2

REPORT INFORMATION
  Report Type: 
  Country: None (occurrence: None)
  Receive Date: 20100607
  Receipt Date: 20100602
  Transmission Date: 20101027
  Serious: Yes (Death)
  Sender: FDA-Public Use
  Company Number: US-WYE-H15471910

PATIENT

DRUGS (1)
  1. TEMSIROLIMUS [Suspect]
     Indication: PANCREATIC CARCINOMA
     Route: 042

REACTIONS (1)
  - HAEMORRHAGIC STROKE [None]
